FAERS Safety Report 8990568 (Version 1)
Quarter: 2012Q4

REPORT INFORMATION
  Report Type: Report from Study
  Country: CA (occurrence: CA)
  Receive Date: 20121228
  Receipt Date: 20121228
  Transmission Date: 20130627
  Serious: Yes (Other)
  Sender: FDA-Public Use
  Company Number: CA-JNJFOC-20121211454

PATIENT
  Sex: Female
  Weight: 67.13 kg

DRUGS (1)
  1. SIMPONI [Suspect]
     Indication: PSORIASIS
     Dates: start: 2011

REACTIONS (3)
  - Lymphadenopathy [Unknown]
  - Pustular psoriasis [Unknown]
  - Weight decreased [Unknown]
